FAERS Safety Report 21713218 (Version 2)
Quarter: 2022Q4

REPORT INFORMATION
  Report Type: Spontaneous
  Country: JP (occurrence: JP)
  Receive Date: 20221212
  Receipt Date: 20221216
  Transmission Date: 20230112
  Serious: Yes (Other)
  Sender: FDA-Public Use
  Company Number: JP-GSKNCCC-Case-01627505_AE-65165

PATIENT

DRUGS (11)
  1. ATOVAQUONE [Suspect]
     Active Substance: ATOVAQUONE
     Indication: Antifungal prophylaxis
     Dosage: 2 DF, QD AFTER BREAKFAST
     Dates: start: 20220806
  2. ATOVAQUONE [Suspect]
     Active Substance: ATOVAQUONE
     Indication: Microscopic polyangiitis
  3. RITUXIMAB [Concomitant]
     Active Substance: RITUXIMAB
     Dosage: 500 MG
     Dates: start: 202209, end: 202209
  4. PREDNISOLONE [Concomitant]
     Active Substance: PREDNISOLONE
     Indication: Microscopic polyangiitis
     Dosage: 1 MG/KG, 1D
  5. PREDNISOLONE [Concomitant]
     Active Substance: PREDNISOLONE
     Dosage: 5 MG
  6. LANSOPRAZOLE [Concomitant]
     Active Substance: LANSOPRAZOLE
     Indication: Microscopic polyangiitis
     Dosage: 30 MG
  7. BISOPROLOL [Concomitant]
     Active Substance: BISOPROLOL
     Indication: Hypertension
     Dosage: 0.625 MG
  8. REPAGLINIDE [Concomitant]
     Active Substance: REPAGLINIDE
     Dosage: 0.25 MG, TID
  9. FOLIC ACID [Concomitant]
     Active Substance: FOLIC ACID
     Dosage: 5 MG, BID
  10. ZINC [Concomitant]
     Active Substance: ZINC
     Dosage: 25 MG, BID
  11. MIYA-BM [Concomitant]
     Active Substance: CLOSTRIDIUM BUTYRICUM SPORES STRAIN M-55
     Dosage: 2 DF, TID

REACTIONS (1)
  - Pneumocystis jirovecii pneumonia [Unknown]
